FAERS Safety Report 5025299-2 (Version None)
Quarter: 2006Q2

REPORT INFORMATION
  Report Type: 
  Country: None (occurrence: None)
  Receive Date: 20060426
  Receipt Date: 20060130
  Transmission Date: 20061013
  Serious: Yes (Other)
  Sender: FDA-Public Use
  Company Number: 2005169879

PATIENT
  Age: 46 Year
  Sex: Female

DRUGS (8)
  1. LYRICA [Suspect]
     Indication: MUSCULOSKELETAL PAIN
     Dosage: 150 MG (75 MG, 2 IN 1 D)
     Dates: start: 20051207, end: 20051213
  2. MOBIC [Concomitant]
  3. FLEXERIL [Concomitant]
  4. ALPRAZOLAM [Concomitant]
  5. NEURONTIN [Concomitant]
  6. MAVIK [Concomitant]
  7. EFFEXOR [Concomitant]
  8. AMITRIPTYLINE (AMITRIPTYLINE) [Concomitant]

REACTIONS (1)
  - SWELLING FACE [None]
